FAERS Safety Report 6553837-7 (Version None)
Quarter: 2010Q1

REPORT INFORMATION
  Report Type: 
  Country: None (occurrence: None)
  Receive Date: 20100127
  Receipt Date: 20100122
  Transmission Date: 20100710
  Serious: Yes (Hospitalization, Other)
  Sender: FDA-Public Use
  Company Number: US-BAYER-201012253NA

PATIENT
  Sex: Female

DRUGS (1)
  1. YASMIN [Suspect]
     Indication: DRUG USE FOR UNKNOWN INDICATION
     Dates: start: 20030601, end: 20050301

REACTIONS (5)
  - CEREBROVASCULAR ACCIDENT [None]
  - HEMIPLEGIA [None]
  - PAIN [None]
  - THROMBOSIS [None]
  - VERTIGO [None]
